FAERS Safety Report 5278108-0 (Version None)
Quarter: 2007Q1

REPORT INFORMATION
  Report Type: 
  Country: None (occurrence: None)
  Receive Date: 20061213
  Receipt Date: 20051114
  Transmission Date: 20070707
  Serious: Yes (Hospitalization)
  Sender: FDA-Public Use
  Company Number: 2005UW16028

PATIENT
  Age: 41 Year
  Sex: Female

DRUGS (13)
  1. SEROQUEL [Suspect]
  2. SEROQUEL [Suspect]
     Dosage: 400 MG PO
     Route: 048
  3. ALBUTEROL SULFATE NEBULIZER SUSPENSION [Concomitant]
  4. EFFEXOR [Concomitant]
  5. PEG-INTRON [Suspect]
     Indication: HEPATITIS C
     Dates: start: 20050801, end: 20050923
  6. RIBAVIRIN [Suspect]
     Indication: HEPATITIS
     Dates: start: 20050801, end: 20050923
  7. KEPPRA [Concomitant]
  8. MEDROXYPROGESTERONE ACETATE [Concomitant]
  9. PREVACID [Concomitant]
  10. QVAR 40 [Concomitant]
  11. SPIRIVA [Concomitant]
  12. VICOPROFEN [Concomitant]
  13. ZOLOFT [Concomitant]

REACTIONS (2)
  - LOSS OF CONSCIOUSNESS [None]
  - OVERDOSE [None]
